FAERS Safety Report 8772964 (Version 1)
Quarter: 2012Q4

REPORT INFORMATION
  Report Type: 
  Country: NP (occurrence: NP)
  Receive Date: 20120907
  Receipt Date: 20120907
  Transmission Date: 20130627
  Serious: Yes (Hospitalization, Other)
  Sender: FDA-Public Use
  Company Number: NP-RANBAXY-2012RR-59234

PATIENT
  Age: 24 Year
  Sex: Female

DRUGS (5)
  1. PREDNISOLONE [Suspect]
     Indication: SYSTEMIC LUPUS ERYTHEMATOSUS
     Dosage: high dose
     Route: 048
  2. PREDNISOLONE [Suspect]
     Indication: SYSTEMIC LUPUS ERYTHEMATOSUS
     Dosage: 20 mg/day
     Route: 048
  3. METHYLPREDNISOLONE [Suspect]
     Indication: SYSTEMIC LUPUS ERYTHEMATOSUS
     Dosage: pulses
     Route: 065
  4. CYCLOPHOSPHAMIDE [Suspect]
     Indication: LUPUS NEPHRITIS
     Dosage: 800 mg, UNK
     Route: 042
  5. AMOXICILLIN [Suspect]
     Indication: OROPHARYNGEAL PAIN
     Dosage: UNK
     Route: 065

REACTIONS (3)
  - Lemierre syndrome [Recovering/Resolving]
  - Oropharyngeal pain [Recovering/Resolving]
  - Dermatitis allergic [Recovering/Resolving]
